FAERS Safety Report 4332194-0 (Version None)
Quarter: 2004Q1

REPORT INFORMATION
  Report Type: 
  Country: None (occurrence: None)
  Receive Date: 20040325
  Receipt Date: 20040211
  Transmission Date: 20041129
  Serious: No
  Sender: FDA-Public Use
  Company Number: US_0402100914

PATIENT
  Age: 64 Year
  Sex: Female

DRUGS (5)
  1. FORTEO [Suspect]
     Indication: OSTEOPOROSIS
     Dates: start: 20040115
  2. FOSAMAX [Concomitant]
  3. CALCIUM [Concomitant]
  4. FLONASE [Concomitant]
  5. ZYRTEC [Concomitant]

REACTIONS (5)
  - EXCITABILITY [None]
  - HEART RATE INCREASED [None]
  - INSOMNIA [None]
  - PAIN IN EXTREMITY [None]
  - PALPITATIONS [None]
